FAERS Safety Report 10666148 (Version 1)
Quarter: 2014Q4

REPORT INFORMATION
  Report Type: Spontaneous
  Country: FR (occurrence: FR)
  Receive Date: 20141219
  Receipt Date: 20141219
  Transmission Date: 20150529
  Serious: Yes (Hospitalization)
  Sender: FDA-Public Use
  Company Number: FR-ASTRAZENECA-2014SE96626

PATIENT
  Age: 16263 Day
  Sex: Female

DRUGS (16)
  1. DIPRIVAN [Concomitant]
     Active Substance: PROPOFOL
     Indication: LUNG INFECTION
     Route: 042
     Dates: start: 20140909, end: 20140924
  2. VANCOMYCINE [Concomitant]
     Active Substance: VANCOMYCIN
     Route: 042
     Dates: start: 20140828, end: 20140907
  3. VANCOMYCINE [Concomitant]
     Active Substance: VANCOMYCIN
     Dates: start: 20140917, end: 20140922
  4. HYPNOVEL [Concomitant]
     Active Substance: MIDAZOLAM\MIDAZOLAM HYDROCHLORIDE
     Route: 042
     Dates: start: 20140909, end: 20141007
  5. RIMIFON [Concomitant]
     Active Substance: ISONIAZID
     Indication: TUBERCULOSIS
     Route: 048
     Dates: start: 20140901, end: 20140929
  6. OMNIPAQUE [Concomitant]
     Active Substance: IOHEXOL
     Route: 042
     Dates: start: 20140909, end: 20140909
  7. CURARES [Concomitant]
     Indication: LUNG INFECTION
     Dates: start: 20140909, end: 20140913
  8. CURARES [Concomitant]
     Indication: LUNG INFECTION
     Dates: start: 20140917
  9. MERONEM [Suspect]
     Active Substance: MEROPENEM
     Indication: LUNG INFECTION
     Route: 042
     Dates: start: 20140909, end: 20140924
  10. RIFADINE [Concomitant]
     Active Substance: RIFAMPIN
     Indication: TUBERCULOSIS
     Route: 048
     Dates: start: 20140901, end: 20140929
  11. MYAMBUTOL [Concomitant]
     Active Substance: ETHAMBUTOL HYDROCHLORIDE
     Indication: TUBERCULOSIS
     Route: 048
     Dates: start: 20140901, end: 20140929
  12. AMIKLIN [Concomitant]
     Active Substance: AMIKACIN SULFATE
     Route: 042
     Dates: start: 20140919, end: 20140919
  13. CANCIDAS [Concomitant]
     Active Substance: CASPOFUNGIN ACETATE
     Route: 042
     Dates: start: 20140917, end: 20140929
  14. NOREPINEPHRINE [Concomitant]
     Active Substance: NOREPINEPHRINE\NOREPINEPHRINE BITARTRATE
     Indication: LUNG INFECTION
     Route: 042
     Dates: start: 20140909, end: 20140913
  15. TAZOCILLINE [Concomitant]
     Active Substance: PIPERACILLIN SODIUM\TAZOBACTAM SODIUM
     Route: 042
     Dates: start: 20140828, end: 20140905
  16. PIRILENE [Concomitant]
     Active Substance: PYRAZINAMIDE
     Indication: TUBERCULOSIS
     Route: 048
     Dates: start: 20140901, end: 20140929

REACTIONS (7)
  - Amylase increased [Unknown]
  - Monocytosis [Unknown]
  - Epstein-Barr virus test positive [Unknown]
  - Human herpes virus 6 serology positive [Unknown]
  - Drug reaction with eosinophilia and systemic symptoms [Recovering/Resolving]
  - Pancreatic disorder [Unknown]
  - Lipase increased [Unknown]

NARRATIVE: CASE EVENT DATE: 20140912
